FAERS Safety Report 10619106 (Version 3)
Quarter: 2015Q1

REPORT INFORMATION
  Report Type: Spontaneous
  Country: GB (occurrence: GB)
  Receive Date: 20141202
  Receipt Date: 20150218
  Transmission Date: 20150720
  Serious: Yes (Hospitalization)
  Sender: FDA-Public Use
  Company Number: CHPA2014GB015001

PATIENT
  Age: 63 Year
  Sex: Female
  Weight: 91 kg

DRUGS (3)
  1. EPILIM [Concomitant]
     Active Substance: VALPROATE SODIUM
     Indication: EPILEPSY
     Dosage: 2 DF, BID
     Route: 048
  2. BUDESONIDE W/FORMOTEROL [Concomitant]
     Indication: ASTHMA
     Dosage: 2 DF, BID
     Route: 055
  3. SCOPODERM TTS [Suspect]
     Active Substance: SCOPOLAMINE
     Indication: PRODUCT USED FOR UNKNOWN INDICATION
     Dosage: 1 MG, Q72H
     Route: 065

REACTIONS (6)
  - Accidental exposure to product [Unknown]
  - Ocular discomfort [Unknown]
  - Mydriasis [Recovered/Resolved]
  - Wrong technique in drug usage process [Unknown]
  - Headache [Unknown]
  - Pupillary reflex impaired [Recovered/Resolved]

NARRATIVE: CASE EVENT DATE: 20141001
